FAERS Safety Report 6445524-0 (Version None)
Quarter: 2009Q4

REPORT INFORMATION
  Report Type: 
  Country: None (occurrence: None)
  Receive Date: 20091118
  Receipt Date: 20091111
  Transmission Date: 20100525
  Serious: Yes (Death)
  Sender: FDA-Public Use
  Company Number: US-GILEAD-2009-0025380

PATIENT
  Sex: Male
  Weight: 89.438 kg

DRUGS (11)
  1. LETAIRIS [Suspect]
     Indication: PULMONARY ARTERIAL HYPERTENSION
     Route: 048
     Dates: start: 20090831
  2. DILTIAZEM [Concomitant]
  3. DIGOXIN [Concomitant]
  4. WARFARIN SODIUM [Concomitant]
  5. PANTOPRAZOLE [Concomitant]
  6. FUROSEMIDE [Concomitant]
  7. OXYGEN [Concomitant]
  8. ALLOPURINOL [Concomitant]
  9. OS-CAL 250+D [Concomitant]
  10. THEOPHYLLINE [Concomitant]
  11. POTASSIUM CHLORIDE [Concomitant]

REACTIONS (1)
  - DEATH [None]
